FAERS Safety Report 19152076 (Version 1)
Quarter: 2021Q2

REPORT INFORMATION
  Report Type: Spontaneous
  Country: US (occurrence: US)
  Receive Date: 20210416
  Receipt Date: 20210416
  Transmission Date: 20210717
  Serious: Yes (Hospitalization)
  Sender: FDA-Public Use
  Company Number: None

PATIENT
  Sex: Male

DRUGS (24)
  1. AMBRISENTAN 5MG TAB [Suspect]
     Active Substance: AMBRISENTAN
     Indication: PULMONARY ARTERIAL HYPERTENSION
     Route: 048
     Dates: start: 20210218
  2. DIVALPROEX ER [Concomitant]
     Active Substance: DIVALPROEX SODIUM
  3. PEPTO?BISMOL [Concomitant]
     Active Substance: BISMUTH SUBSALICYLATE
  4. SOTALOL HCL [Concomitant]
     Active Substance: SOTALOL
  5. DIVALPROEX DR [Concomitant]
     Active Substance: DIVALPROEX SODIUM
  6. FUROSEMIDE. [Concomitant]
     Active Substance: FUROSEMIDE
  7. LEVOTHYROXIN [Concomitant]
     Active Substance: LEVOTHYROXINE
  8. POT CHLORIDE ER [Concomitant]
  9. ALBUTEROL HFA [Concomitant]
     Active Substance: ALBUTEROL SULFATE
  10. AMOXICILLIN. [Concomitant]
     Active Substance: AMOXICILLIN
  11. LEVOFLOXACIN. [Concomitant]
     Active Substance: LEVOFLOXACIN
  12. SILDENAFIL. [Concomitant]
     Active Substance: SILDENAFIL
  13. VENTOLIN HFA [Concomitant]
     Active Substance: ALBUTEROL SULFATE
  14. ATORVASTATIN [Concomitant]
     Active Substance: ATORVASTATIN
  15. BREO ELLIPTA [Concomitant]
     Active Substance: FLUTICASONE FUROATE\VILANTEROL TRIFENATATE
  16. BROM/PSE/DM [Concomitant]
  17. BUPROPION. [Concomitant]
     Active Substance: BUPROPION
  18. DOXYCYCL HYC [Concomitant]
  19. SPIRIVA HANDIHLR [Concomitant]
  20. WARFARIN [Concomitant]
     Active Substance: WARFARIN
  21. IPRATROPIUM/SOL ALBUTER [Concomitant]
  22. OMEPRAZOLE. [Concomitant]
     Active Substance: OMEPRAZOLE
  23. ALLOPURINOL. [Concomitant]
     Active Substance: ALLOPURINOL
  24. LEVETIRACETA [Concomitant]
     Active Substance: LEVETIRACETAM

REACTIONS (1)
  - Chronic obstructive pulmonary disease [None]
